FAERS Safety Report 9958646 (Version 1)
Quarter: 2014Q1

REPORT INFORMATION
  Report Type: Spontaneous
  Country: US (occurrence: None)
  Receive Date: 20140228
  Receipt Date: 20140228
  Transmission Date: 20141002
  Serious: Yes (Hospitalization)
  Sender: FDA-Public Use
  Company Number: None

PATIENT
  Sex: Female
  Weight: 61.69 kg

DRUGS (3)
  1. ACYCLOVIR [Suspect]
     Indication: ARTHRITIS
     Dosage: 4 CAPSULES BY MOUTH 5 TIMES DAILY?MOUTH
     Route: 048
  2. DILANTIN [Concomitant]
  3. GABAPENTIN [Concomitant]

REACTIONS (2)
  - Herpes zoster [None]
  - Slow speech [None]
